FAERS Safety Report 10716839 (Version 1)
Quarter: 2015Q1

REPORT INFORMATION
  Report Type: Spontaneous
  Country: IT (occurrence: FR)
  Receive Date: 20150116
  Receipt Date: 20150116
  Transmission Date: 20150721
  Serious: Yes (Hospitalization)
  Sender: FDA-Public Use
  Company Number: IT-SIGMA-TAU US-2014STPI000206

PATIENT
  Age: 46 Year
  Sex: Male

DRUGS (10)
  1. LEVETIRACETAM BIOGARAN [Suspect]
     Active Substance: LEVETIRACETAM
     Indication: PRODUCT USED FOR UNKNOWN INDICATION
     Dosage: 2 DF, UNK
     Route: 048
     Dates: start: 201311
  2. VINCRISTINE SULFATE. [Suspect]
     Active Substance: VINCRISTINE SULFATE
     Indication: GLIOMA
     Dosage: 2 MG, X1
     Route: 042
     Dates: start: 20140128, end: 20140128
  3. MIRTAZAPINE EG [Concomitant]
     Indication: PRODUCT USED FOR UNKNOWN INDICATION
     Dosage: UNK
  4. NORSET [Suspect]
     Active Substance: MIRTAZAPINE
     Indication: PRODUCT USED FOR UNKNOWN INDICATION
     Dosage: 1 DF, UNK
     Route: 048
     Dates: start: 201311, end: 20131202
  5. MATULANE [Suspect]
     Active Substance: PROCARBAZINE HYDROCHLORIDE
     Indication: OLIGODENDROGLIOMA
     Dosage: 100 MG, UNK
     Route: 048
     Dates: start: 20140218, end: 20140221
  6. VINCRISTINE SULFATE. [Suspect]
     Active Substance: VINCRISTINE SULFATE
     Dosage: 2 MG, X1
     Route: 042
     Dates: start: 20140218, end: 20140218
  7. BELUSTINE [Suspect]
     Active Substance: LOMUSTINE
     Indication: PRODUCT USED FOR UNKNOWN INDICATION
     Dosage: 160 MG, X1
     Route: 048
     Dates: start: 20140121, end: 20140121
  8. NORSET [Suspect]
     Active Substance: MIRTAZAPINE
     Dosage: 1 DF, UNK
     Route: 048
     Dates: start: 201401
  9. ALPRAZOLAM. [Concomitant]
     Active Substance: ALPRAZOLAM
     Indication: PRODUCT USED FOR UNKNOWN INDICATION
     Dosage: UNK
     Dates: start: 201311
  10. IMOVANE [Suspect]
     Active Substance: ZOPICLONE
     Indication: PRODUCT USED FOR UNKNOWN INDICATION
     Dosage: 7.5 MG, QD
     Route: 048
     Dates: start: 20131202

REACTIONS (2)
  - Suicide attempt [Recovered/Resolved]
  - Laceration [None]

NARRATIVE: CASE EVENT DATE: 20140221
